APPROVED DRUG PRODUCT: LACOSAMIDE
Active Ingredient: LACOSAMIDE
Strength: 200MG
Dosage Form/Route: TABLET;ORAL
Application: A218014 | Product #004 | TE Code: AB
Applicant: KANCHAN HEALTHCARE INC
Approved: Apr 2, 2024 | RLD: No | RS: No | Type: RX